FAERS Safety Report 7540566-6 (Version None)
Quarter: 2011Q2

REPORT INFORMATION
  Report Type: 
  Country: None (occurrence: None)
  Receive Date: 20110610
  Receipt Date: 20110603
  Transmission Date: 20111010
  Serious: Yes (Hospitalization)
  Sender: FDA-Public Use
  Company Number: B0724902A

PATIENT
  Age: 79 Year
  Sex: Female

DRUGS (1)
  1. AVANDIA [Suspect]
     Route: 048
     Dates: start: 20070801, end: 20080401

REACTIONS (2)
  - CORONARY ARTERY OCCLUSION [None]
  - STENT PLACEMENT [None]
